FAERS Safety Report 15656057 (Version 3)
Quarter: 2019Q1

REPORT INFORMATION
  Report Type: Spontaneous
  Country: CA (occurrence: CA)
  Receive Date: 20181126
  Receipt Date: 20190319
  Transmission Date: 20190417
  Serious: Yes (Hospitalization, Other)
  Sender: FDA-Public Use
  Company Number: CA-BRISTOL-MYERS SQUIBB COMPANY-BMS-2018-107446

PATIENT
  Age: 74 Year
  Sex: Female

DRUGS (1)
  1. ORENCIA [Suspect]
     Active Substance: ABATACEPT
     Indication: RHEUMATOID ARTHRITIS
     Dosage: 125 UNK, QWK
     Route: 058
     Dates: start: 20171226, end: 20181127

REACTIONS (3)
  - Osteomyelitis [Not Recovered/Not Resolved]
  - Skin ulcer [Unknown]
  - Product dose omission [Unknown]

NARRATIVE: CASE EVENT DATE: 20181026
